FAERS Safety Report 5709970-2 (Version None)
Quarter: 2008Q2

REPORT INFORMATION
  Report Type: 
  Country: None (occurrence: None)
  Receive Date: 20080418
  Receipt Date: 20070703
  Transmission Date: 20081010
  Serious: No
  Sender: FDA-Public Use
  Company Number: US-ASTRAZENECA-2007UW14085

PATIENT
  Age: 24585 Day
  Sex: Female
  Weight: 59.1 kg

DRUGS (5)
  1. TOPROL-XL [Suspect]
     Indication: HYPERTENSION
     Route: 048
     Dates: start: 20070530, end: 20070612
  2. LOTREL [Concomitant]
     Route: 048
  3. PRILOSEC [Concomitant]
     Indication: GASTRITIS
     Route: 048
  4. PLAVIX [Concomitant]
     Indication: ANGIOPATHY
     Route: 048
  5. ASPIRIN [Concomitant]
     Indication: ANGIOPATHY
     Route: 048

REACTIONS (1)
  - HYPOGLYCAEMIA [None]
